FAERS Safety Report 10027830 (Version 1)
Quarter: 2014Q1

REPORT INFORMATION
  Report Type: Report from Study
  Country: US (occurrence: US)
  Receive Date: 20140321
  Receipt Date: 20140321
  Transmission Date: 20141002
  Serious: Yes (Death)
  Sender: FDA-Public Use
  Company Number: US-ABBVIE-14P-163-1213457-00

PATIENT
  Sex: Male

DRUGS (1)
  1. GENGRAF [Suspect]
     Indication: TRANSPLANT REJECTION
     Route: 048
     Dates: start: 201307

REACTIONS (1)
  - Death [Fatal]
